FAERS Safety Report 5952256-1 (Version None)
Quarter: 2008Q4

REPORT INFORMATION
  Report Type: 
  Country: None (occurrence: None)
  Receive Date: 20081113
  Receipt Date: 20081103
  Transmission Date: 20090506
  Serious: Yes (Hospitalization)
  Sender: FDA-Public Use
  Company Number: US-AVENTIS-200817601US

PATIENT
  Sex: Female

DRUGS (5)
  1. KETEK [Suspect]
     Indication: UPPER RESPIRATORY TRACT INFECTION
     Dosage: DOSE: UNK
     Route: 048
     Dates: start: 20060101
  2. VITAMIN E [Concomitant]
     Dosage: DOSE: UNK
  3. FEMHRT [Concomitant]
     Dosage: DOSE: UNK
  4. ALLEGRA [Concomitant]
     Dosage: DOSE: UNK
  5. MULTI-VITAMINS [Concomitant]
     Dosage: DOSE: UNK

REACTIONS (17)
  - ABDOMINAL PAIN LOWER [None]
  - ALANINE AMINOTRANSFERASE INCREASED [None]
  - ASPARTATE AMINOTRANSFERASE INCREASED [None]
  - ASTHENIA [None]
  - BILIRUBIN CONJUGATED INCREASED [None]
  - BLOOD ALKALINE PHOSPHATASE INCREASED [None]
  - BLOOD BILIRUBIN INCREASED [None]
  - CHILLS [None]
  - CHROMATURIA [None]
  - DIARRHOEA [None]
  - FAECES PALE [None]
  - FATIGUE [None]
  - HEPATITIS [None]
  - JAUNDICE [None]
  - LETHARGY [None]
  - NAUSEA [None]
  - OEDEMA PERIPHERAL [None]
